FAERS Safety Report 5295969-X (Version None)
Quarter: 2007Q2

REPORT INFORMATION
  Report Type: 
  Country: None (occurrence: None)
  Receive Date: 20070413
  Receipt Date: 20070402
  Transmission Date: 20071010
  Serious: Yes (Hospitalization)
  Sender: FDA-Public Use
  Company Number: FR-BAYER-200610985BFR

PATIENT
  Age: 90 Year
  Sex: Female

DRUGS (11)
  1. CIPROFLOXACIN HCL [Suspect]
     Indication: CHOLECYSTITIS
     Dosage: UNIT DOSE: 500 MG
     Route: 048
     Dates: start: 20060823, end: 20060905
  2. AUGMENTIN '125' [Suspect]
     Indication: CHOLECYSTITIS
     Route: 048
     Dates: start: 20060823, end: 20060905
  3. LASIX [Suspect]
     Indication: UNEVALUABLE EVENT
     Route: 048
  4. COLCHIMAX [Suspect]
     Indication: UNEVALUABLE EVENT
     Dates: start: 20060824
  5. CARDENSIEL [Concomitant]
     Indication: UNEVALUABLE EVENT
     Route: 048
     Dates: start: 20060825
  6. CORDARONE [Concomitant]
     Indication: UNEVALUABLE EVENT
     Route: 048
     Dates: start: 20060825
  7. VASTAREL [Concomitant]
     Indication: UNEVALUABLE EVENT
  8. DIFFU K [Concomitant]
     Indication: UNEVALUABLE EVENT
  9. KARDEGIC [Concomitant]
     Indication: UNEVALUABLE EVENT
  10. NEXIUM [Concomitant]
     Indication: UNEVALUABLE EVENT
  11. XANAX [Concomitant]
     Indication: UNEVALUABLE EVENT

REACTIONS (4)
  - ASTHENIA [None]
  - DEHYDRATION [None]
  - DIARRHOEA [None]
  - RENAL FAILURE ACUTE [None]
